FAERS Safety Report 4282247-0 (Version None)
Quarter: 2004Q1

REPORT INFORMATION
  Report Type: 
  Country: None (occurrence: None)
  Receive Date: 20040112
  Receipt Date: 20030617
  Transmission Date: 20041129
  Serious: Yes (Hospitalization)
  Sender: FDA-Public Use
  Company Number: NSADSS2003025015

PATIENT
  Age: 31 Year
  Sex: Female
  Weight: 136.0791 kg

DRUGS (3)
  1. REOPRO [Suspect]
     Indication: VASCULAR OCCLUSION
     Dosage: INTRAVENOUS DRIP17  ML, 1 IN 1 AS NECESSARY
     Route: 041
  2. TPA () TPE [Concomitant]
  3. HEPARIN [Concomitant]

REACTIONS (2)
  - EPISTAXIS [None]
  - HAEMORRHAGE INTRACRANIAL [None]
